FAERS Safety Report 9690194 (Version 1)
Quarter: 2013Q4

REPORT INFORMATION
  Report Type: Report from Study
  Country: US (occurrence: US)
  Receive Date: 20131115
  Receipt Date: 20131115
  Transmission Date: 20140711
  Serious: Yes (Other)
  Sender: FDA-Public Use
  Company Number: PHEH2013US023792

PATIENT
  Age: 86 Year
  Sex: Female

DRUGS (1)
  1. AFINITOR [Suspect]
     Indication: BREAST CANCER
     Dosage: 10 MG, DAILY
     Route: 048

REACTIONS (6)
  - Hip fracture [Unknown]
  - Fall [Unknown]
  - Blood glucose decreased [Unknown]
  - Fluid retention [Unknown]
  - Hypersensitivity [Unknown]
  - Rash [Unknown]
